FAERS Safety Report 24966953 (Version 2)
Quarter: 2025Q2

REPORT INFORMATION
  Report Type: Report from Study
  Country: US (occurrence: US)
  Receive Date: 20250213
  Receipt Date: 20250422
  Transmission Date: 20250716
  Serious: No
  Sender: SUNOVION
  Company Number: US-SMPA-2025SPA001097AA

PATIENT

DRUGS (2)
  1. ORGOVYX [Suspect]
     Active Substance: RELUGOLIX
     Indication: Prostate cancer
     Route: 048
  2. ORGOVYX [Suspect]
     Active Substance: RELUGOLIX
     Dosage: 120 MG, QD
     Route: 048
     Dates: start: 20241211

REACTIONS (11)
  - Lethargy [Unknown]
  - Feeling abnormal [Unknown]
  - Abdominal distension [Unknown]
  - Depressed mood [Unknown]
  - Nausea [Unknown]
  - Headache [Unknown]
  - Insomnia [Unknown]
  - Weight increased [Unknown]
  - Hot flush [Unknown]
  - Asthenia [Unknown]
  - Product dose omission in error [Unknown]
